FAERS Safety Report 23082373 (Version 1)
Quarter: 2023Q4

REPORT INFORMATION
  Report Type: Spontaneous
  Country: US (occurrence: US)
  Receive Date: 20231019
  Receipt Date: 20231019
  Transmission Date: 20240110
  Serious: No
  Sender: FDA-Public Use
  Company Number: US-BRISTOL-MYERS SQUIBB COMPANY-2023-149227

PATIENT
  Age: 63 Year
  Sex: Male

DRUGS (1)
  1. SOTYKTU [Suspect]
     Active Substance: DEUCRAVACITINIB
     Indication: Product used for unknown indication
     Dates: start: 20231015

REACTIONS (3)
  - Pain in extremity [Unknown]
  - Arthralgia [Unknown]
  - Respiratory disorder [Unknown]

NARRATIVE: CASE EVENT DATE: 20231015
